FAERS Safety Report 6376743-X (Version None)
Quarter: 2009Q3

REPORT INFORMATION
  Report Type: 
  Country: None (occurrence: None)
  Receive Date: 20090915
  Receipt Date: 20090915
  Transmission Date: 20100115
  Serious: Yes (Other)
  Sender: FDA-Public Use
  Company Number: None

PATIENT
  Sex: Female
  Weight: 67.1324 kg

DRUGS (1)
  1. RECLAST [Suspect]
     Dates: start: 20090821

REACTIONS (6)
  - ABASIA [None]
  - BONE PAIN [None]
  - INSOMNIA [None]
  - NAUSEA [None]
  - NECK PAIN [None]
  - PAIN [None]
